FAERS Safety Report 19725665 (Version 2)
Quarter: 2022Q3

REPORT INFORMATION
  Report Type: Report from Study
  Country: FR (occurrence: FR)
  Receive Date: 20210819
  Receipt Date: 20220718
  Transmission Date: 20221026
  Serious: Yes (Hospitalization, Other)
  Sender: FDA-Public Use
  Company Number: FR-TAKEDA-FR201914938

PATIENT
  Sex: Male
  Weight: 54 kg

DRUGS (30)
  1. TEDUGLUTIDE [Suspect]
     Active Substance: TEDUGLUTIDE
     Indication: Short-bowel syndrome
     Dosage: UNK
     Route: 065
  2. TEDUGLUTIDE [Suspect]
     Active Substance: TEDUGLUTIDE
     Indication: Short-bowel syndrome
     Dosage: UNK
     Route: 065
  3. TEDUGLUTIDE [Suspect]
     Active Substance: TEDUGLUTIDE
     Indication: Short-bowel syndrome
     Dosage: UNK
     Route: 065
  4. TEDUGLUTIDE [Suspect]
     Active Substance: TEDUGLUTIDE
     Indication: Short-bowel syndrome
     Dosage: UNK
     Route: 065
  5. WARFARIN SODIUM [Concomitant]
     Active Substance: WARFARIN SODIUM
     Indication: Anticoagulant therapy
     Dosage: 2 MILLIGRAM, TID
     Route: 048
     Dates: start: 201807
  6. LEVOFLOXACIN [Concomitant]
     Active Substance: LEVOFLOXACIN
     Indication: Anticoagulant therapy
     Dosage: 0.80 MILLILITER, BID
     Route: 058
     Dates: start: 201807
  7. VANCOMYCIN [Concomitant]
     Active Substance: VANCOMYCIN
     Indication: Anti-infective therapy
     Dosage: 500 MILLIGRAM
     Route: 042
     Dates: start: 201807, end: 201807
  8. PIPERACILLIN SODIUM\TAZOBACTAM SODIUM [Concomitant]
     Active Substance: PIPERACILLIN SODIUM\TAZOBACTAM SODIUM
     Indication: Anti-infective therapy
     Dosage: 2 GRAM
     Route: 042
     Dates: start: 201807, end: 201807
  9. VITAMIN K [Concomitant]
     Active Substance: PHYTONADIONE
     Indication: Prophylaxis
     Dosage: 10 MILLIGRAM, 1/WEEK
     Route: 048
  10. CHOLECALCIFEROL [Concomitant]
     Active Substance: CHOLECALCIFEROL
     Indication: Prophylaxis
     Dosage: 1 DOSAGE FORM, 1/WEEK
     Route: 048
     Dates: end: 201610
  11. CHOLECALCIFEROL [Concomitant]
     Active Substance: CHOLECALCIFEROL
     Dosage: 1 DOSAGE FORM, 1/WEEK
     Route: 048
     Dates: start: 201610
  12. TRAMADOL [Concomitant]
     Active Substance: TRAMADOL
     Indication: Pain
     Dosage: 2 DOSAGE FORM, BID
     Route: 048
  13. KARDEGIC [Concomitant]
     Active Substance: ASPIRIN DL-LYSINE
     Indication: Antiplatelet therapy
     Dosage: 75 MILLIGRAM, QD
     Route: 048
  14. TAHOR [Concomitant]
     Active Substance: ATORVASTATIN CALCIUM
     Indication: Intracardiac thrombus
     Dosage: 10 MILLIGRAM, QD
     Route: 048
  15. ESOMEPRAZOLE [Concomitant]
     Active Substance: ESOMEPRAZOLE
     Indication: Gastrointestinal disorder prophylaxis
     Dosage: 40 MILLIGRAM, BID
     Route: 048
  16. REPAGLINIDE [Concomitant]
     Active Substance: REPAGLINIDE
     Indication: Diabetes prophylaxis
     Dosage: 2 MILLIGRAM, TID
     Route: 048
  17. POTASSIUM [Concomitant]
     Active Substance: POTASSIUM
     Indication: Prophylaxis
     Dosage: 2 DOSAGE FORM, QD
     Route: 042
  18. CODEINE PHOSPHATE [Concomitant]
     Active Substance: CODEINE PHOSPHATE
     Indication: Prophylaxis
     Dosage: 40 MILLIGRAM, TID
     Route: 048
  19. CREON [Concomitant]
     Active Substance: PANCRELIPASE AMYLASE\PANCRELIPASE LIPASE\PANCRELIPASE PROTEASE
     Indication: Prophylaxis
     Dosage: 4 DOSAGE FORM, TID
     Route: 048
  20. LOPERAMIDE [Concomitant]
     Active Substance: LOPERAMIDE
     Indication: Antidiarrhoeal supportive care
     Dosage: 4 MILLIGRAM, TID
     Route: 048
  21. URSODIOL [Concomitant]
     Active Substance: URSODIOL
     Indication: Prophylaxis
     Dosage: 500 MILLIGRAM, TID
     Route: 048
  22. CEFTRIAXONE SODIUM [Concomitant]
     Active Substance: CEFTRIAXONE SODIUM
     Indication: Infection
     Dosage: 1 GRAM
     Route: 042
     Dates: start: 202003, end: 202004
  23. CEFTRIAXONE SODIUM [Concomitant]
     Active Substance: CEFTRIAXONE SODIUM
     Dosage: 1 GRAM
     Route: 042
     Dates: start: 201806, end: 201806
  24. INVANZ [Concomitant]
     Active Substance: ERTAPENEM SODIUM
     Indication: Infection
     Dosage: 1 GRAM
     Route: 042
     Dates: start: 20200319, end: 20200402
  25. KAYEXALATE [Concomitant]
     Active Substance: SODIUM POLYSTYRENE SULFONATE
     Indication: Hyperkalaemia
     Dosage: 454 GRAM
     Route: 048
     Dates: start: 202003, end: 202005
  26. CANCIDAS [Concomitant]
     Active Substance: CASPOFUNGIN ACETATE
     Indication: Vascular device infection
     Dosage: 50 MILLIGRAM, QD
     Route: 048
     Dates: start: 20201122, end: 202011
  27. CASPOFUNGIN [Concomitant]
     Active Substance: CASPOFUNGIN
     Indication: Vascular device infection
     Dosage: UNK
     Route: 042
     Dates: start: 20210103, end: 20210113
  28. LYRICA [Concomitant]
     Active Substance: PREGABALIN
     Indication: Pain
     Dosage: 300 MILLIGRAM
     Route: 048
     Dates: start: 20180321
  29. ZOMETA [Concomitant]
     Active Substance: ZOLEDRONIC ACID
     Indication: Bone disorder
     Dosage: 4 MILLIGRAM
     Route: 042
     Dates: start: 201709, end: 201909
  30. CEFTAZIDIME [Concomitant]
     Active Substance: CEFTAZIDIME
     Indication: Vascular device infection
     Dosage: UNK
     Route: 042
     Dates: start: 20210831, end: 20210909

REACTIONS (4)
  - Sepsis [Not Recovered/Not Resolved]
  - Diarrhoea [Recovered/Resolved]
  - Metabolic acidosis [Recovered/Resolved]
  - Hypovolaemia [Recovered/Resolved]

NARRATIVE: CASE EVENT DATE: 20181205
